FAERS Safety Report 7791703-X (Version None)
Quarter: 2011Q4

REPORT INFORMATION
  Report Type: 
  Country: None (occurrence: None)
  Receive Date: 20111003
  Receipt Date: 20110922
  Transmission Date: 20120403
  Serious: Yes (Hospitalization)
  Sender: FDA-Public Use
  Company Number: CZ-BRISTOL-MYERS SQUIBB COMPANY-16063208

PATIENT
  Age: 52 Year
  Sex: Female
  Weight: 55 kg

DRUGS (10)
  1. MAGNESIUM SULFATE [Concomitant]
     Route: 042
     Dates: start: 20110322, end: 20110322
  2. LOCOID [Concomitant]
     Dosage: FORMU: CREAM 0.1%
     Route: 003
     Dates: start: 20110406
  3. NEULASTA [Concomitant]
     Dosage: REPETADELY BETWEEN 6MAY10 + 10FEB11
     Route: 058
     Dates: start: 20100506, end: 20110210
  4. HELICID [Concomitant]
     Indication: PROPHYLAXIS
     Route: 048
     Dates: start: 20110118
  5. MAGNESIUM [Concomitant]
     Route: 048
     Dates: start: 20110112, end: 20110223
  6. ASCORUTIN [Concomitant]
     Route: 048
     Dates: start: 20110309
  7. IRINOTECAN HCL [Suspect]
     Indication: COLORECTAL CANCER METASTATIC
     Dosage: LAST INF ON 08FEB11.
     Route: 042
     Dates: start: 20100222, end: 20110208
  8. LINOLA-FETT [Concomitant]
     Route: 003
     Dates: start: 20110406
  9. CETUXIMAB [Suspect]
     Indication: COLORECTAL CANCER METASTATIC
     Dosage: NO OF INFUSION-41.LAST INF ON 06SEP11.
     Route: 042
     Dates: start: 20100222, end: 20110906
  10. AMLODIPINE [Concomitant]
     Route: 048
     Dates: start: 20100310, end: 20100622

REACTIONS (1)
  - TACHYARRHYTHMIA [None]
